FAERS Safety Report 15769629 (Version 2)
Quarter: 2019Q1

REPORT INFORMATION
  Report Type: Spontaneous
  Country: JP (occurrence: JP)
  Receive Date: 20181228
  Receipt Date: 20190224
  Transmission Date: 20190417
  Serious: Yes (Other)
  Sender: FDA-Public Use
  Company Number: JP-ROCHE-2215395

PATIENT
  Age: 70 Year
  Sex: Male

DRUGS (1)
  1. TECENTRIQ [Suspect]
     Active Substance: ATEZOLIZUMAB
     Indication: NON-SMALL CELL LUNG CANCER
     Route: 041
     Dates: start: 20181009

REACTIONS (9)
  - Rash macular [Unknown]
  - Blood thyroid stimulating hormone decreased [Unknown]
  - Muscle spasms [Not Recovered/Not Resolved]
  - Hyperthyroidism [Not Recovered/Not Resolved]
  - Tri-iodothyronine increased [Unknown]
  - Pain [Unknown]
  - Flushing [Not Recovered/Not Resolved]
  - Metastases to bone [Unknown]
  - Metastasis [Unknown]

NARRATIVE: CASE EVENT DATE: 20181009
